FAERS Safety Report 7436824-6 (Version None)
Quarter: 2011Q2

REPORT INFORMATION
  Report Type: 
  Country: None (occurrence: None)
  Receive Date: 20110426
  Receipt Date: 20110314
  Transmission Date: 20111010
  Serious: Yes (Other)
  Sender: FDA-Public Use
  Company Number: US-BAYER-201034699NA

PATIENT
  Age: 29 Year
  Sex: Female
  Weight: 100 kg

DRUGS (6)
  1. YAZ [Suspect]
     Indication: CONTRACEPTION
     Dosage: UNK UNK, QD
     Route: 048
     Dates: start: 20081101, end: 20091001
  2. ZOLOFT [Concomitant]
     Indication: OBSESSIVE-COMPULSIVE DISORDER
     Dosage: UNK UNK, QD
     Route: 048
  3. YAZ [Suspect]
     Dosage: UNK
     Dates: start: 20081101, end: 20091001
  4. OCELLA [Suspect]
     Indication: CONTRACEPTION
     Dosage: UNK UNK, QD
     Route: 048
     Dates: start: 20080801, end: 20081001
  5. YASMIN [Suspect]
     Indication: CONTRACEPTION
     Dosage: UNK UNK, QD
     Route: 048
     Dates: start: 20050301, end: 20050701
  6. YASMIN [Suspect]
     Dosage: UNK UNK, QD
     Route: 048
     Dates: start: 20060501, end: 20080701

REACTIONS (3)
  - CHOLECYSTECTOMY [None]
  - NEPHROLITHIASIS [None]
  - CHOLECYSTITIS CHRONIC [None]
